FAERS Safety Report 8544517-7 (Version None)
Quarter: 2012Q3

REPORT INFORMATION
  Report Type: 
  Country: None (occurrence: None)
  Receive Date: 20120727
  Receipt Date: 20120719
  Transmission Date: 20120928
  Serious: Yes (Other)
  Sender: FDA-Public Use
  Company Number: CN-BAXTER-2012BAX012142

PATIENT
  Sex: Female
  Weight: 3.2 kg

DRUGS (2)
  1. 10% GLUCOSE  INJECTION [Suspect]
     Indication: FLUID REPLACEMENT
  2. 10% GLUCOSE  INJECTION [Suspect]
     Route: 041
     Dates: start: 20090114, end: 20090114

REACTIONS (2)
  - HEART RATE DECREASED [None]
  - ANAPHYLACTOID REACTION [None]
